FAERS Safety Report 18428518 (Version 2)
Quarter: 2020Q4

REPORT INFORMATION
  Report Type: Report from Study
  Country: DK (occurrence: DK)
  Receive Date: 20201026
  Receipt Date: 20201106
  Transmission Date: 20210114
  Serious: Yes (Hospitalization)
  Sender: FDA-Public Use
  Company Number: DK-AMGEN-DNKCT2020171149

PATIENT
  Age: 52 Year
  Sex: Female
  Weight: 79.6 kg

DRUGS (13)
  1. DULOXETINE. [Concomitant]
     Active Substance: DULOXETINE
     Dosage: 30 MILLIGRAM
     Route: 048
     Dates: start: 20170411
  2. NORVASC [Concomitant]
     Active Substance: AMLODIPINE BESYLATE
     Dosage: 5 MILLIGRAM
     Route: 048
     Dates: start: 20190326
  3. METFORMIN [Concomitant]
     Active Substance: METFORMIN HYDROCHLORIDE
     Dosage: 500 MILLIGRAM
     Route: 048
     Dates: start: 20200402
  4. PARACETAMOL [Concomitant]
     Active Substance: ACETAMINOPHEN
     Dosage: 1 GRAM
     Route: 048
     Dates: start: 20170321
  5. EVOLOCUMAB [Suspect]
     Active Substance: EVOLOCUMAB
     Dosage: 140 UNK
     Route: 058
  6. ATORVASTATIN [Concomitant]
     Active Substance: ATORVASTATIN
     Indication: DYSLIPIDAEMIA
     Dosage: 80 MILLIGRAM
     Dates: start: 20130207
  7. EVOLOCUMAB [Suspect]
     Active Substance: EVOLOCUMAB
     Indication: DYSLIPIDAEMIA
     Dosage: UNK MILLILITER
     Route: 058
     Dates: start: 20170523
  8. ASPIRIN [ACETYLSALICYLIC ACID] [Concomitant]
     Active Substance: ASPIRIN
     Dosage: UNK
  9. BENDROFLUMETHIAZIDE;POTASSIUM [Concomitant]
     Dosage: 2.5 MILLIGRAM
     Route: 048
     Dates: start: 20190703
  10. OXYCONTIN [Concomitant]
     Active Substance: OXYCODONE HYDROCHLORIDE
     Dosage: 10 MILLIGRAM
     Route: 048
     Dates: start: 20180905
  11. PANTOPRAZOL [PANTOPRAZOLE] [Concomitant]
     Active Substance: PANTOPRAZOLE
     Dosage: 40 MILLIGRAM
     Dates: start: 20200320, end: 20201019
  12. MACROGOL [Concomitant]
     Active Substance: POLYETHYLENE GLYCOLS
     Dosage: 1 UNK
     Route: 048
     Dates: start: 20200717
  13. EVOLOCUMAB [Suspect]
     Active Substance: EVOLOCUMAB
     Dosage: UNK
     Route: 058
     Dates: start: 20201102

REACTIONS (2)
  - Dizziness [Not Recovered/Not Resolved]
  - Dizziness [Not Recovered/Not Resolved]

NARRATIVE: CASE EVENT DATE: 20201008
